APPROVED DRUG PRODUCT: ESTRACE
Active Ingredient: ESTRADIOL
Strength: 1MG
Dosage Form/Route: TABLET;ORAL
Application: A084499 | Product #001
Applicant: BRISTOL MYERS SQUIBB CO PHARMACEUTICAL RESEARCH INSTITUTE
Approved: Approved Prior to Jan 1, 1982 | RLD: Yes | RS: No | Type: DISCN